FAERS Safety Report 8510933-2 (Version None)
Quarter: 2012Q3

REPORT INFORMATION
  Report Type: 
  Country: None (occurrence: None)
  Receive Date: 20120716
  Receipt Date: 20120704
  Transmission Date: 20120928
  Serious: Yes (Other)
  Sender: FDA-Public Use
  Company Number: CA-JNJFOC-20120702614

PATIENT
  Sex: Male
  Weight: 85.6 kg

DRUGS (6)
  1. REMICADE [Suspect]
     Indication: COLITIS ULCERATIVE
     Route: 042
     Dates: start: 20090721
  2. NASONEX [Concomitant]
     Indication: COUGH
     Route: 065
  3. REMICADE [Suspect]
     Route: 042
     Dates: start: 20120704
  4. NASONEX [Concomitant]
     Indication: UPPER-AIRWAY COUGH SYNDROME
     Route: 065
  5. MOTRIN [Concomitant]
     Indication: HEADACHE
     Route: 065
  6. MOTRIN [Concomitant]
     Indication: ARTHRALGIA
     Route: 065

REACTIONS (10)
  - OEDEMA PERIPHERAL [None]
  - UPPER-AIRWAY COUGH SYNDROME [None]
  - TENDERNESS [None]
  - HYPOAESTHESIA [None]
  - COUGH [None]
  - MUSCULOSKELETAL STIFFNESS [None]
  - ARTHRALGIA [None]
  - CHILLS [None]
  - PAIN [None]
  - HEADACHE [None]
